FAERS Safety Report 13699842 (Version 5)
Quarter: 2017Q3

REPORT INFORMATION
  Report Type: Spontaneous
  Country: US (occurrence: US)
  Receive Date: 20170629
  Receipt Date: 20170929
  Transmission Date: 20171127
  Serious: Yes (Death, Hospitalization)
  Sender: FDA-Public Use
  Company Number: US-VIFOR (INTERNATIONAL) INC.-VIT-2017-06505

PATIENT
  Age: 65 Year
  Sex: Male
  Weight: 81 kg

DRUGS (102)
  1. MIRCERA [Suspect]
     Active Substance: METHOXY POLYETHYLENE GLYCOL-EPOETIN BETA
     Route: 040
     Dates: start: 20161223
  2. MIRCERA [Suspect]
     Active Substance: METHOXY POLYETHYLENE GLYCOL-EPOETIN BETA
     Route: 040
     Dates: start: 20160826
  3. MIRCERA [Suspect]
     Active Substance: METHOXY POLYETHYLENE GLYCOL-EPOETIN BETA
     Route: 040
     Dates: start: 20160401
  4. MIRCERA [Suspect]
     Active Substance: METHOXY POLYETHYLENE GLYCOL-EPOETIN BETA
     Route: 040
     Dates: start: 20170721
  5. EPOGEN [Suspect]
     Active Substance: ERYTHROPOIETIN
     Dates: start: 20150828
  6. EPOGEN [Suspect]
     Active Substance: ERYTHROPOIETIN
     Dates: start: 20150424
  7. EPOGEN [Suspect]
     Active Substance: ERYTHROPOIETIN
     Dates: start: 20150410
  8. EPOGEN [Suspect]
     Active Substance: ERYTHROPOIETIN
     Dates: start: 20150220
  9. EPOGEN [Suspect]
     Active Substance: ERYTHROPOIETIN
     Dates: start: 20150123
  10. EPOGEN [Suspect]
     Active Substance: ERYTHROPOIETIN
     Dates: start: 20140919
  11. EPOGEN [Suspect]
     Active Substance: ERYTHROPOIETIN
     Dates: start: 20140912
  12. MIRCERA [Suspect]
     Active Substance: METHOXY POLYETHYLENE GLYCOL-EPOETIN BETA
     Route: 040
     Dates: start: 20160909
  13. MIRCERA [Suspect]
     Active Substance: METHOXY POLYETHYLENE GLYCOL-EPOETIN BETA
     Route: 040
     Dates: start: 20160805
  14. MIRCERA [Suspect]
     Active Substance: METHOXY POLYETHYLENE GLYCOL-EPOETIN BETA
     Route: 040
     Dates: start: 20160429
  15. MIRCERA [Suspect]
     Active Substance: METHOXY POLYETHYLENE GLYCOL-EPOETIN BETA
     Route: 040
     Dates: start: 20160415
  16. MIRCERA [Suspect]
     Active Substance: METHOXY POLYETHYLENE GLYCOL-EPOETIN BETA
     Route: 040
     Dates: start: 20170710
  17. EPOGEN [Suspect]
     Active Substance: ERYTHROPOIETIN
     Dates: start: 20150612
  18. EPOGEN [Suspect]
     Active Substance: ERYTHROPOIETIN
     Dates: start: 20150227
  19. EPOGEN [Suspect]
     Active Substance: ERYTHROPOIETIN
     Dates: start: 20140829
  20. SIMVASTATIN. [Concomitant]
     Active Substance: SIMVASTATIN
     Route: 048
  21. MIRCERA [Suspect]
     Active Substance: METHOXY POLYETHYLENE GLYCOL-EPOETIN BETA
     Indication: NEPHROGENIC ANAEMIA
     Route: 040
     Dates: start: 20150925
  22. MIRCERA [Suspect]
     Active Substance: METHOXY POLYETHYLENE GLYCOL-EPOETIN BETA
     Route: 040
     Dates: start: 20170303
  23. MIRCERA [Suspect]
     Active Substance: METHOXY POLYETHYLENE GLYCOL-EPOETIN BETA
     Route: 040
     Dates: start: 20170106
  24. MIRCERA [Suspect]
     Active Substance: METHOXY POLYETHYLENE GLYCOL-EPOETIN BETA
     Route: 040
     Dates: start: 20160722
  25. MIRCERA [Suspect]
     Active Substance: METHOXY POLYETHYLENE GLYCOL-EPOETIN BETA
     Route: 040
     Dates: start: 20160708
  26. MIRCERA [Suspect]
     Active Substance: METHOXY POLYETHYLENE GLYCOL-EPOETIN BETA
     Route: 040
     Dates: start: 20160122
  27. MIRCERA [Suspect]
     Active Substance: METHOXY POLYETHYLENE GLYCOL-EPOETIN BETA
     Route: 040
     Dates: start: 20151009
  28. MIRCERA [Suspect]
     Active Substance: METHOXY POLYETHYLENE GLYCOL-EPOETIN BETA
     Route: 040
     Dates: start: 20170529
  29. EPOGEN [Suspect]
     Active Substance: ERYTHROPOIETIN
     Dates: start: 20150717
  30. EPOGEN [Suspect]
     Active Substance: ERYTHROPOIETIN
     Dates: start: 20150501
  31. EPOGEN [Suspect]
     Active Substance: ERYTHROPOIETIN
     Dates: start: 20150309
  32. EPOGEN [Suspect]
     Active Substance: ERYTHROPOIETIN
     Dates: start: 20150130
  33. EPOGEN [Suspect]
     Active Substance: ERYTHROPOIETIN
     Dates: start: 20141128
  34. EPOGEN [Suspect]
     Active Substance: ERYTHROPOIETIN
     Dates: start: 20140822
  35. VITAMIN D3 [Concomitant]
     Active Substance: CHOLECALCIFEROL
     Route: 048
  36. MIRCERA [Suspect]
     Active Substance: METHOXY POLYETHYLENE GLYCOL-EPOETIN BETA
     Route: 040
     Dates: start: 20170116
  37. MIRCERA [Suspect]
     Active Substance: METHOXY POLYETHYLENE GLYCOL-EPOETIN BETA
     Route: 040
     Dates: start: 20161118
  38. MIRCERA [Suspect]
     Active Substance: METHOXY POLYETHYLENE GLYCOL-EPOETIN BETA
     Route: 040
     Dates: start: 20160624
  39. EPOGEN [Suspect]
     Active Substance: ERYTHROPOIETIN
     Dates: start: 20150911
  40. EPOGEN [Suspect]
     Active Substance: ERYTHROPOIETIN
     Dates: start: 20150206
  41. EPOGEN [Suspect]
     Active Substance: ERYTHROPOIETIN
     Dates: start: 20140725
  42. EPOGEN [Suspect]
     Active Substance: ERYTHROPOIETIN
     Dates: start: 20140711
  43. BENZONATATE. [Concomitant]
     Active Substance: BENZONATATE
     Indication: COUGH
  44. FISH OIL [Concomitant]
     Active Substance: FISH OIL
     Route: 048
  45. MIRCERA [Suspect]
     Active Substance: METHOXY POLYETHYLENE GLYCOL-EPOETIN BETA
     Route: 040
     Dates: start: 20170414
  46. MIRCERA [Suspect]
     Active Substance: METHOXY POLYETHYLENE GLYCOL-EPOETIN BETA
     Route: 040
     Dates: start: 20170331
  47. MIRCERA [Suspect]
     Active Substance: METHOXY POLYETHYLENE GLYCOL-EPOETIN BETA
     Route: 040
     Dates: start: 20151226
  48. EPOGEN [Suspect]
     Active Substance: ERYTHROPOIETIN
     Dates: start: 20150619
  49. EPOGEN [Suspect]
     Active Substance: ERYTHROPOIETIN
     Dates: start: 20150320
  50. EPOGEN [Suspect]
     Active Substance: ERYTHROPOIETIN
     Dates: start: 20141212
  51. EPOGEN [Suspect]
     Active Substance: ERYTHROPOIETIN
     Dates: start: 20141121
  52. EPOGEN [Suspect]
     Active Substance: ERYTHROPOIETIN
     Dates: start: 20140808
  53. EPOGEN [Suspect]
     Active Substance: ERYTHROPOIETIN
     Dates: start: 20140801
  54. MIRCERA [Suspect]
     Active Substance: METHOXY POLYETHYLENE GLYCOL-EPOETIN BETA
     Route: 040
     Dates: start: 20170512
  55. MIRCERA [Suspect]
     Active Substance: METHOXY POLYETHYLENE GLYCOL-EPOETIN BETA
     Route: 040
     Dates: start: 20170428
  56. MIRCERA [Suspect]
     Active Substance: METHOXY POLYETHYLENE GLYCOL-EPOETIN BETA
     Route: 040
     Dates: start: 20161007
  57. MIRCERA [Suspect]
     Active Substance: METHOXY POLYETHYLENE GLYCOL-EPOETIN BETA
     Route: 040
     Dates: start: 20160610
  58. MIRCERA [Suspect]
     Active Substance: METHOXY POLYETHYLENE GLYCOL-EPOETIN BETA
     Route: 040
     Dates: start: 20160219
  59. MIRCERA [Suspect]
     Active Substance: METHOXY POLYETHYLENE GLYCOL-EPOETIN BETA
     Route: 040
     Dates: start: 20151127
  60. MIRCERA [Suspect]
     Active Substance: METHOXY POLYETHYLENE GLYCOL-EPOETIN BETA
     Route: 040
     Dates: start: 20170809
  61. EPOGEN [Suspect]
     Active Substance: ERYTHROPOIETIN
     Dates: start: 20150814
  62. EPOGEN [Suspect]
     Active Substance: ERYTHROPOIETIN
     Dates: start: 20150710
  63. EPOGEN [Suspect]
     Active Substance: ERYTHROPOIETIN
     Dates: start: 20150403
  64. EPOGEN [Suspect]
     Active Substance: ERYTHROPOIETIN
     Dates: start: 20141114
  65. EPOGEN [Suspect]
     Active Substance: ERYTHROPOIETIN
     Dates: start: 20141017
  66. EPOGEN [Suspect]
     Active Substance: ERYTHROPOIETIN
     Dates: start: 20140905
  67. FUROSEMIDE. [Concomitant]
     Active Substance: FUROSEMIDE
     Route: 048
  68. TUMS [Concomitant]
     Active Substance: CALCIUM CARBONATE
     Route: 048
  69. MIRCERA [Suspect]
     Active Substance: METHOXY POLYETHYLENE GLYCOL-EPOETIN BETA
     Route: 040
     Dates: start: 20160513
  70. MIRCERA [Suspect]
     Active Substance: METHOXY POLYETHYLENE GLYCOL-EPOETIN BETA
     Route: 040
     Dates: start: 20160318
  71. MIRCERA [Suspect]
     Active Substance: METHOXY POLYETHYLENE GLYCOL-EPOETIN BETA
     Route: 040
     Dates: start: 20151030
  72. EPOGEN [Suspect]
     Active Substance: ERYTHROPOIETIN
     Dates: start: 20150904
  73. EPOGEN [Suspect]
     Active Substance: ERYTHROPOIETIN
     Dates: start: 20150807
  74. EPOGEN [Suspect]
     Active Substance: ERYTHROPOIETIN
     Dates: start: 20150731
  75. EPOGEN [Suspect]
     Active Substance: ERYTHROPOIETIN
     Dates: start: 20150724
  76. EPOGEN [Suspect]
     Active Substance: ERYTHROPOIETIN
     Dates: start: 20150703
  77. EPOGEN [Suspect]
     Active Substance: ERYTHROPOIETIN
     Dates: start: 20150626
  78. EPOGEN [Suspect]
     Active Substance: ERYTHROPOIETIN
     Dates: start: 20150508
  79. EPOGEN [Suspect]
     Active Substance: ERYTHROPOIETIN
     Dates: start: 20150417
  80. EPOGEN [Suspect]
     Active Substance: ERYTHROPOIETIN
     Dates: start: 20150327
  81. EPOGEN [Suspect]
     Active Substance: ERYTHROPOIETIN
     Dates: start: 20141107
  82. EPOGEN [Suspect]
     Active Substance: ERYTHROPOIETIN
     Dates: start: 20141003
  83. EPOGEN [Suspect]
     Active Substance: ERYTHROPOIETIN
     Dates: start: 20140718
  84. LACTULOSE. [Concomitant]
     Active Substance: LACTULOSE
     Route: 048
  85. MIRCERA [Suspect]
     Active Substance: METHOXY POLYETHYLENE GLYCOL-EPOETIN BETA
     Route: 040
     Dates: start: 20170317
  86. MIRCERA [Suspect]
     Active Substance: METHOXY POLYETHYLENE GLYCOL-EPOETIN BETA
     Route: 040
     Dates: start: 20170217
  87. MIRCERA [Suspect]
     Active Substance: METHOXY POLYETHYLENE GLYCOL-EPOETIN BETA
     Route: 040
     Dates: start: 20161207
  88. MIRCERA [Suspect]
     Active Substance: METHOXY POLYETHYLENE GLYCOL-EPOETIN BETA
     Route: 040
     Dates: start: 20161104
  89. MIRCERA [Suspect]
     Active Substance: METHOXY POLYETHYLENE GLYCOL-EPOETIN BETA
     Route: 040
     Dates: start: 20161021
  90. EPOGEN [Suspect]
     Active Substance: ERYTHROPOIETIN
     Indication: NEPHROGENIC ANAEMIA
     Dates: start: 20150918
  91. EPOGEN [Suspect]
     Active Substance: ERYTHROPOIETIN
     Dates: start: 20150821
  92. EPOGEN [Suspect]
     Active Substance: ERYTHROPOIETIN
     Dates: start: 20150605
  93. EPOGEN [Suspect]
     Active Substance: ERYTHROPOIETIN
     Dates: start: 20150306
  94. EPOGEN [Suspect]
     Active Substance: ERYTHROPOIETIN
     Dates: start: 20150102
  95. EPOGEN [Suspect]
     Active Substance: ERYTHROPOIETIN
     Dates: start: 20141205
  96. EPOGEN [Suspect]
     Active Substance: ERYTHROPOIETIN
     Dates: start: 20141031
  97. EPOGEN [Suspect]
     Active Substance: ERYTHROPOIETIN
     Dates: start: 20141010
  98. CODEINE PHOSPHATE/GUAIFENESIN [Concomitant]
     Dosage: 10-100 MG/5 ML LIQUID
  99. DIALYVITE 800-ULTRA D [Concomitant]
     Dosage: 0.8-2000 MG-UNIT TABLET
     Route: 048
  100. FAMOTIDINE. [Concomitant]
     Active Substance: FAMOTIDINE
     Indication: DYSPEPSIA
     Route: 048
  101. FENOFIBRATE. [Concomitant]
     Active Substance: FENOFIBRATE
     Route: 048
  102. MIDODRINE [Concomitant]
     Active Substance: MIDODRINE
     Route: 048

REACTIONS (4)
  - Haemoglobin decreased [Not Recovered/Not Resolved]
  - Death [Fatal]
  - General physical health deterioration [Unknown]
  - Drug ineffective [Unknown]

NARRATIVE: CASE EVENT DATE: 201703
